FAERS Safety Report 18028027 (Version 1)
Quarter: 2020Q3

REPORT INFORMATION
  Report Type: Spontaneous
  Country: US (occurrence: US)
  Receive Date: 20200716
  Receipt Date: 20200716
  Transmission Date: 20201103
  Serious: No
  Sender: FDA-Public Use
  Company Number: US-BIOGEN-2015BI028106

PATIENT
  Age: 50 Year
  Sex: Female

DRUGS (2)
  1. TECFIDERA [Suspect]
     Active Substance: DIMETHYL FUMARATE
     Route: 048
     Dates: start: 20141202, end: 20150109
  2. TECFIDERA [Suspect]
     Active Substance: DIMETHYL FUMARATE
     Indication: MULTIPLE SCLEROSIS
     Route: 048
     Dates: start: 201412, end: 201412

REACTIONS (8)
  - Chills [Recovered/Resolved]
  - Drug ineffective [Unknown]
  - Pyrexia [Recovered/Resolved]
  - Weight decreased [Recovered/Resolved]
  - Diarrhoea [Unknown]
  - Oral herpes [Recovered/Resolved]
  - Decreased appetite [Recovered/Resolved]
  - Multiple sclerosis [Unknown]

NARRATIVE: CASE EVENT DATE: 201412
